FAERS Safety Report 6140654-5 (Version None)
Quarter: 2009Q2

REPORT INFORMATION
  Report Type: 
  Country: None (occurrence: None)
  Receive Date: 20090402
  Receipt Date: 20090331
  Transmission Date: 20091009
  Serious: Yes (Death, Other)
  Sender: FDA-Public Use
  Company Number: US-B.I. PHARMACEUTICALS,INC./RIDGEFIELD-2009-BP-00038BP

PATIENT
  Sex: Female

DRUGS (11)
  1. SPIRIVA [Suspect]
     Indication: ASTHMA
     Dosage: 18MCG
     Route: 055
     Dates: start: 20081101, end: 20081230
  2. LEXAPRO [Concomitant]
     Indication: DEPRESSION
     Route: 048
  3. ALLOPURINOL [Concomitant]
     Route: 048
  4. LIPITOR [Concomitant]
     Indication: BLOOD CHOLESTEROL INCREASED
     Route: 048
  5. FUROSEMIDE [Concomitant]
     Route: 048
  6. POTASSIUM CHLORIDE [Concomitant]
     Route: 048
  7. SINGULAIR [Concomitant]
     Indication: ASTHMA
     Route: 048
  8. COUMADIN [Concomitant]
     Indication: HEART VALVE REPLACEMENT
     Route: 048
  9. ZETIA [Concomitant]
     Indication: BLOOD CHOLESTEROL INCREASED
     Route: 048
  10. LANOXIN [Concomitant]
     Route: 048
  11. INSULIN [Concomitant]
     Indication: DIABETES MELLITUS
     Dosage: UNSPECIFIED INJECTION

REACTIONS (4)
  - CARDIAC OPERATION [None]
  - DEATH [None]
  - FALL [None]
  - VISION BLURRED [None]
